FAERS Safety Report 7792685 (Version 2)
Quarter: 2013Q3

REPORT INFORMATION
  Report Type: Spontaneous
  Country: US (occurrence: US)
  Receive Date: 20110131
  Receipt Date: 20130809
  Transmission Date: 20140515
  Serious: Yes (Other)
  Sender: FDA-Public Use
  Company Number: US-ROCHE-714523

PATIENT
  Age: 38 Year
  Sex: Male
  Weight: 81.6 kg

DRUGS (1)
  1. ACCUTANE [Suspect]
     Indication: ACNE
     Route: 065
     Dates: start: 20020211, end: 20020605

REACTIONS (9)
  - Colitis ulcerative [Unknown]
  - Inflammatory bowel disease [Unknown]
  - Colitis [Unknown]
  - Stress [Unknown]
  - Dry skin [Unknown]
  - Cheilitis [Unknown]
  - Arthralgia [Unknown]
  - Blood cholesterol increased [Recovered/Resolved]
  - Nephrolithiasis [Unknown]
